FAERS Safety Report 18928054 (Version 2)
Quarter: 2021Q1

REPORT INFORMATION
  Report Type: Spontaneous
  Country: SK (occurrence: GB)
  Receive Date: 20210223
  Receipt Date: 20210302
  Transmission Date: 20210420
  Serious: Yes (Other)
  Sender: FDA-Public Use
  Company Number: GB-GLAXOSMITHKLINE-GB2021047888

PATIENT
  Age: 53 Year
  Sex: Female

DRUGS (1)
  1. LAMICTAL [Suspect]
     Active Substance: LAMOTRIGINE
     Indication: EPILEPSY
     Dosage: UNK

REACTIONS (8)
  - Rash [Not Recovered/Not Resolved]
  - Immune system disorder [Unknown]
  - COVID-19 pneumonia [Recovering/Resolving]
  - Skin burning sensation [Not Recovered/Not Resolved]
  - Rash vesicular [Not Recovered/Not Resolved]
  - Lung disorder [Unknown]
  - Bronchitis [Recovering/Resolving]
  - COVID-19 [Recovering/Resolving]

NARRATIVE: CASE EVENT DATE: 20210102
